FAERS Safety Report 11598920 (Version 1)
Quarter: 2015Q4

REPORT INFORMATION
  Report Type: Spontaneous
  Country: FR (occurrence: FR)
  Receive Date: 20151006
  Receipt Date: 20151006
  Transmission Date: 20160304
  Serious: Yes (Hospitalization)
  Sender: FDA-Public Use
  Company Number: FR-SA-2015SA149804

PATIENT
  Age: 80 Year
  Sex: Female

DRUGS (11)
  1. CIPROFIBRATE [Suspect]
     Active Substance: CIPROFIBRATE
     Indication: DYSLIPIDAEMIA
     Route: 048
     Dates: end: 20150805
  2. KARDEGIC [Suspect]
     Active Substance: ASPIRIN LYSINE
     Route: 048
     Dates: end: 20150807
  3. SERETIDE [Concomitant]
     Active Substance: FLUTICASONE FUROATE\SALMETEROL XINAFOATE
  4. FUROSEMIDE. [Suspect]
     Active Substance: FUROSEMIDE
     Indication: HYPERTENSION
     Route: 048
     Dates: end: 20150805
  5. TRAMADOL. [Suspect]
     Active Substance: TRAMADOL
     Route: 065
     Dates: end: 20150805
  6. EXFORGE [Suspect]
     Active Substance: AMLODIPINE BESYLATE\VALSARTAN
     Indication: HYPERTENSION
     Route: 048
     Dates: end: 20150805
  7. ZYLORIC [Concomitant]
     Active Substance: ALLOPURINOL
     Dosage: STRENGTH: 100 MG
     Route: 048
  8. AMOROLFINE [Concomitant]
     Active Substance: AMOROLFINE
  9. CORGARD [Suspect]
     Active Substance: NADOLOL
     Indication: CARDIAC FAILURE
     Route: 048
     Dates: end: 20150805
  10. UVEDOSE [Concomitant]
     Active Substance: CHOLECALCIFEROL
  11. PNEUMOREL [Concomitant]
     Active Substance: FENSPIRIDE HYDROCHLORIDE

REACTIONS (3)
  - Confusional state [Recovered/Resolved]
  - Hyperlipasaemia [Recovered/Resolved]
  - Hyponatraemia [Recovered/Resolved]

NARRATIVE: CASE EVENT DATE: 20150805
